FAERS Safety Report 9785826 (Version 2)
Quarter: 2013Q4

REPORT INFORMATION
  Report Type: Spontaneous
  Country: GB (occurrence: GB)
  Receive Date: 20131227
  Receipt Date: 20131227
  Transmission Date: 20140711
  Serious: Yes (Disabling)
  Sender: FDA-Public Use
  Company Number: GB-GE HEALTHCARE MEDICAL DIAGNOSTICS-OSCN-PR-0801S-0016

PATIENT
  Age: 32 Year
  Sex: Male

DRUGS (35)
  1. OMNISCAN [Suspect]
     Indication: PRODUCT USED FOR UNKNOWN INDICATION
     Dates: start: 20030312, end: 20030312
  2. OMNISCAN [Suspect]
     Dates: start: 20030411, end: 20030411
  3. OMNISCAN [Suspect]
     Dates: start: 20030716, end: 20030716
  4. OMNISCAN [Suspect]
     Dates: start: 20050216, end: 20050216
  5. GADOLINIUM (UNSPECIFIED) [Suspect]
     Indication: VON HIPPEL-LINDAU DISEASE
     Route: 042
     Dates: start: 20020130, end: 20020130
  6. GADOLINIUM (UNSPECIFIED) [Suspect]
     Indication: HAEMANGIOMA
     Dates: start: 20020404, end: 20020404
  7. GADOLINIUM (UNSPECIFIED) [Suspect]
     Indication: PANCREATIC CYST
     Dates: start: 20020717, end: 20020717
  8. GADOLINIUM (UNSPECIFIED) [Suspect]
     Indication: INVESTIGATION
     Dates: start: 20040616, end: 20040616
  9. GADOLINIUM (UNSPECIFIED) [Suspect]
     Dates: start: 20050323, end: 20050323
  10. GADOLINIUM (UNSPECIFIED) [Suspect]
     Dates: start: 20051207, end: 20051207
  11. DOTAREM [Suspect]
     Indication: PRODUCT USED FOR UNKNOWN INDICATION
     Dates: start: 20070302, end: 20070302
  12. ERYTHROPOIETIN [Concomitant]
     Dosage: 4000 IU THREE TIMES A WEEK
     Dates: start: 2002, end: 2003
  13. ARANESP [Concomitant]
     Dosage: 60 ?G ONCE A WEEK
     Dates: start: 2003
  14. SACCHARATED IRON OXIDE [Concomitant]
     Route: 042
  15. RENAVIT [Concomitant]
  16. CALCICHEW [Concomitant]
  17. ZOPICLONE [Concomitant]
  18. GABAPENTIN [Concomitant]
  19. CHLORPHENIRAMINE [Concomitant]
  20. RAMIPRIL [Concomitant]
  21. CODEINE PHOSPHATE [Concomitant]
  22. ALENDRONATE [Concomitant]
  23. ASPIRIN [Concomitant]
  24. ALUMINIUM HYDROXIDE [Concomitant]
  25. CIPROFLOXACIN [Concomitant]
  26. RENAGEL [Concomitant]
  27. LANZOPRAZOLE [Concomitant]
  28. AMITRIPTYLINE [Concomitant]
  29. DIALYVITE [Concomitant]
  30. HYDROXYZINE [Concomitant]
  31. CELLCEPT [Concomitant]
  32. CYCLOSPORINE [Concomitant]
  33. PREDNISOLONE [Concomitant]
  34. SIROLIMUS [Concomitant]
  35. ISONIAZID [Concomitant]

REACTIONS (1)
  - Nephrogenic systemic fibrosis [Not Recovered/Not Resolved]
